FAERS Safety Report 9543943 (Version 1)
Quarter: 2013Q2

REPORT INFORMATION
  Report Type: Spontaneous
  Country: US (occurrence: None)
  Receive Date: 20130524
  Receipt Date: 20130524
  Transmission Date: 20140414
  Serious: Yes (Other)
  Sender: FDA-Public Use
  Company Number: PHEH2013US004898

PATIENT
  Age: 50 Year
  Sex: Female
  Weight: 70.7 kg

DRUGS (7)
  1. GILENYA [Suspect]
     Indication: MULTIPLE SCLEROSIS
     Route: 048
     Dates: start: 20120307
  2. ESTRADIOL (ESTRADIOL) [Concomitant]
  3. LEVOTHYROXINE [Concomitant]
  4. LIPITOR (ATORVASTATIN CALCIUM) [Concomitant]
  5. CITALOPRAM (CITALOPRAM) [Concomitant]
  6. RAMIPRIL (RAMIPRIL) [Concomitant]
  7. METHYLPHENIDATE [Concomitant]

REACTIONS (1)
  - White blood cell count decreased [None]
